FAERS Safety Report 8716938 (Version 2)
Quarter: 2013Q1

REPORT INFORMATION
  Report Type: Spontaneous
  Country: RO (occurrence: RO)
  Receive Date: 20120810
  Receipt Date: 20130207
  Transmission Date: 20140127
  Serious: Yes (Hospitalization)
  Sender: FDA-Public Use
  Company Number: RO-JNJFOC-20120802566

PATIENT
  Sex: Female

DRUGS (3)
  1. REMICADE [Suspect]
     Indication: COLITIS ULCERATIVE
     Dosage: 4 BOTTLES/8 WEEKS
     Route: 042
     Dates: start: 20120301, end: 20120413
  2. SALAZOPYRIN [Concomitant]
     Indication: COLITIS ULCERATIVE
     Route: 048
  3. FERROGRADUMET [Concomitant]
     Indication: ANAEMIA
     Route: 048

REACTIONS (1)
  - B-cell lymphoma [Recovering/Resolving]
